FAERS Safety Report 17363501 (Version 5)
Quarter: 2020Q2

REPORT INFORMATION
  Report Type: Report from Study
  Country: US (occurrence: US)
  Receive Date: 20200203
  Receipt Date: 20200520
  Transmission Date: 20200713
  Serious: Yes (Death, Hospitalization)
  Sender: FDA-Public Use
  Company Number: US-ACTELION-A-NJ2020-201191

PATIENT
  Age: 47 Year
  Sex: Male
  Weight: 68.03 kg

DRUGS (4)
  1. TRACLEER [Suspect]
     Active Substance: BOSENTAN
     Indication: PULMONARY ARTERIAL HYPERTENSION
     Dosage: 32 MG, BID
     Route: 048
     Dates: end: 20200319
  2. UPTRAVI [Suspect]
     Active Substance: SELEXIPAG
     Dosage: 200 MCG, BID
     Route: 048
  3. UPTRAVI [Suspect]
     Active Substance: SELEXIPAG
     Indication: PULMONARY ARTERIAL HYPERTENSION
     Dosage: 1200 MCG, BID
     Route: 048
  4. ADEMPAS [Concomitant]
     Active Substance: RIOCIGUAT
     Dosage: 1 MG

REACTIONS (6)
  - Ventricular tachycardia [Fatal]
  - Acute respiratory distress syndrome [Recovering/Resolving]
  - White blood cell count increased [Unknown]
  - Pulmonary arterial wedge pressure increased [Unknown]
  - Pneumonia [Unknown]
  - Terminal state [Unknown]

NARRATIVE: CASE EVENT DATE: 20200203
